FAERS Safety Report 19814036 (Version 1)
Quarter: 2021Q3

REPORT INFORMATION
  Report Type: Spontaneous
  Country: NL (occurrence: NL)
  Receive Date: 20210910
  Receipt Date: 20210910
  Transmission Date: 20211014
  Serious: Yes (Other)
  Sender: FDA-Public Use
  Company Number: NL-MYLANLABS-2021M1059203

PATIENT
  Age: 81 Year
  Sex: Male
  Weight: 69 kg

DRUGS (6)
  1. PERINDOPRIL [Concomitant]
     Active Substance: PERINDOPRIL
     Dosage: 4 MILLIGRAM
  2. ROSUVASTATINE                      /01588602/ [Concomitant]
     Dosage: 10 MILLIGRAM
  3. OMEPRAZOL                          /00661201/ [Concomitant]
     Active Substance: OMEPRAZOLE
     Dosage: 20 MILLIGRAM
  4. AMIODARON MYLAN 200 MG TABLETY [Suspect]
     Active Substance: AMIODARONE
     Indication: ATRIAL FLUTTER
     Dosage: 1 X PER DAY 1 PIECE
     Dates: start: 20210119
  5. ISOSORBIDEDINITRAAT [Concomitant]
     Dosage: 20 MILLIGRAM
  6. APIXABAN [Concomitant]
     Active Substance: APIXABAN
     Dosage: 5 MILLIGRAM

REACTIONS (4)
  - Hyperthyroidism [Recovering/Resolving]
  - Abnormal faeces [Recovering/Resolving]
  - Weight decreased [Recovering/Resolving]
  - Dysphonia [Recovering/Resolving]

NARRATIVE: CASE EVENT DATE: 20210628
